FAERS Safety Report 9147041 (Version 2)
Quarter: 2013Q1

REPORT INFORMATION
  Report Type: Report from Study
  Country: CA (occurrence: CA)
  Receive Date: 20130307
  Receipt Date: 20130313
  Transmission Date: 20140127
  Serious: Yes (Other)
  Sender: FDA-Public Use
  Company Number: CA-ROCHE-1198869

PATIENT
  Age: 59 Year
  Sex: Female
  Weight: 93 kg

DRUGS (16)
  1. RITUXAN [Suspect]
     Indication: RHEUMATOID ARTHRITIS
     Route: 042
     Dates: start: 20100607
  2. VITAMIN A [Concomitant]
  3. VITAMIN B3 [Concomitant]
  4. CALCIUM CARBONATE [Concomitant]
  5. B COMPLEX [Concomitant]
  6. DIPHENHYDRAMINE HCL [Concomitant]
     Indication: PREMEDICATION
     Route: 048
     Dates: start: 20110413
  7. ACETAMINOPHEN [Concomitant]
     Indication: PREMEDICATION
     Route: 048
     Dates: start: 20110413
  8. METHOTREXATE [Concomitant]
     Route: 048
  9. OMEPRAZOLE [Concomitant]
  10. ALENDRONATE [Concomitant]
  11. CRESTOR [Concomitant]
  12. MICARDIS [Concomitant]
  13. PREDNISONE [Concomitant]
  14. DOXYCYCLINE [Concomitant]
  15. FOLIC ACID [Concomitant]
  16. METHYLPREDNISOLONE [Concomitant]
     Route: 042
     Dates: start: 20100607

REACTIONS (1)
  - Foot fracture [Not Recovered/Not Resolved]
